FAERS Safety Report 12597982 (Version 2)
Quarter: 2016Q3

REPORT INFORMATION
  Report Type: Spontaneous
  Country: DK (occurrence: DK)
  Receive Date: 20160727
  Receipt Date: 20160927
  Transmission Date: 20161109
  Serious: Yes (Death, Life-Threatening, Other)
  Sender: FDA-Public Use
  Company Number: DK-TEVA-679721ISR

PATIENT
  Age: 39 Year
  Sex: Male
  Weight: 97 kg

DRUGS (6)
  1. OLANZAPINE. [Suspect]
     Active Substance: OLANZAPINE
     Indication: SCHIZOPHRENIA
     Dates: start: 20101122, end: 20110117
  2. MORPHINE [Concomitant]
     Active Substance: MORPHINE
  3. OXAZEPAM. [Concomitant]
     Active Substance: OXAZEPAM
     Indication: ANXIETY
  4. VENLAFAXINE [Concomitant]
     Active Substance: VENLAFAXINE HYDROCHLORIDE
     Indication: MAJOR DEPRESSION
  5. DIAZEPAM. [Concomitant]
     Active Substance: DIAZEPAM
  6. PREGABALIN. [Concomitant]
     Active Substance: PREGABALIN
     Indication: ANXIETY
     Dates: start: 20101201, end: 20110117

REACTIONS (2)
  - Eosinophilic myocarditis [Fatal]
  - Overdose [Unknown]

NARRATIVE: CASE EVENT DATE: 20110117
